FAERS Safety Report 19296021 (Version 3)
Quarter: 2022Q2

REPORT INFORMATION
  Report Type: Spontaneous
  Country: US (occurrence: US)
  Receive Date: 20210524
  Receipt Date: 20220616
  Transmission Date: 20220721
  Serious: Yes (Other)
  Sender: FDA-Public Use
  Company Number: US-PURDUE-USA-2020-0165005

PATIENT
  Sex: Female

DRUGS (14)
  1. OXYCONTIN [Suspect]
     Active Substance: OXYCODONE HYDROCHLORIDE
     Indication: Pain
     Dosage: UNKNOWN
     Route: 048
  2. OXYCODONE HYDROCHLORIDE [Suspect]
     Active Substance: OXYCODONE HYDROCHLORIDE
     Indication: Pain
     Dosage: 30 MG, DAILY
     Route: 048
  3. HYDROCODONE BITARTRATE AND ACETAMINOPHEN [Suspect]
     Active Substance: ACETAMINOPHEN\HYDROCODONE BITARTRATE
     Indication: Pain
     Dosage: UNKNOWN
     Route: 048
  4. RYZOLT [Suspect]
     Active Substance: TRAMADOL HYDROCHLORIDE
     Indication: Pain
     Dosage: UNKNOWN
     Route: 048
  5. FENTANYL [Suspect]
     Active Substance: FENTANYL
     Indication: Pain
     Dosage: 50 MCG, UNK
     Route: 062
  6. FENTANYL [Suspect]
     Active Substance: FENTANYL
     Dosage: 100 MCG, UNK
     Route: 062
  7. DURAGESIC [Suspect]
     Active Substance: FENTANYL
     Indication: Pain
     Dosage: 25 MCG, UNK
     Route: 062
  8. TRANXENE [Concomitant]
     Active Substance: CLORAZEPATE DIPOTASSIUM
     Indication: Product used for unknown indication
     Dosage: 3.75 MG, BID
     Route: 048
  9. LORTAB [Concomitant]
     Active Substance: ACETAMINOPHEN\HYDROCODONE BITARTRATE
     Indication: Pain
     Dosage: 10 MG, UNK
     Route: 048
  10. LEVOTHYROXINE [Concomitant]
     Active Substance: LEVOTHYROXINE
     Indication: Product used for unknown indication
     Dosage: 150 MCG, UNK
     Route: 048
  11. TRAZODONE [Concomitant]
     Active Substance: TRAZODONE HYDROCHLORIDE
     Indication: Product used for unknown indication
     Dosage: 50 MG, UNK
     Route: 048
  12. PAROXETINE [Concomitant]
     Active Substance: PAROXETINE
     Indication: Product used for unknown indication
     Dosage: 20 MG, UNK
     Route: 048
  13. FERROUS SULFATE [Concomitant]
     Active Substance: FERROUS SULFATE
     Indication: Product used for unknown indication
     Dosage: 325 MG, UNK
     Route: 048
  14. ENOXAPARIN [Concomitant]
     Active Substance: ENOXAPARIN
     Indication: Product used for unknown indication
     Dosage: 40 MG, UNK

REACTIONS (3)
  - Drug dependence [Unknown]
  - Drug withdrawal syndrome [Unknown]
  - Pain [Unknown]
